FAERS Safety Report 7927442-1 (Version None)
Quarter: 2011Q4

REPORT INFORMATION
  Report Type: 
  Country: None (occurrence: None)
  Receive Date: 20111118
  Receipt Date: 20111104
  Transmission Date: 20120403
  Serious: Yes (Hospitalization)
  Sender: FDA-Public Use
  Company Number: JP-UCBSA-037677

PATIENT
  Age: 49 Year
  Sex: Female

DRUGS (9)
  1. REBAMIPIDE [Concomitant]
     Dosage: DAILY DOSE: 300MG
     Dates: start: 20090410, end: 20110710
  2. KETOPROFEN [Concomitant]
     Dosage: ADEQUATE DOSE
     Dates: start: 20090410
  3. INDOMETHACIN [Concomitant]
     Dosage: ADEQUATE DOSE
     Dates: start: 20090728
  4. FLAVIN ADENINE DINUCLEOTIDE SODIUM [Concomitant]
     Dosage: DAILY DOSE:15MG
     Dates: start: 20110607, end: 20110802
  5. CERTOLIZUMAB PEGOL [Suspect]
     Dosage: RA0006: WEEK 0, 2 AND 4
     Route: 058
     Dates: start: 20090818
  6. ALFACALCIDOL [Concomitant]
     Dosage: DAILY DOSE:0.5MCG
     Dates: start: 20100501
  7. LOXONIN [Suspect]
     Indication: RHEUMATOID ARTHRITIS
     Dosage: 180 MG DAILY DOSE
     Route: 048
     Dates: start: 20090714, end: 20110710
  8. CERTOLIZUMAB PEGOL [Suspect]
     Indication: RHEUMATOID ARTHRITIS
     Route: 058
     Dates: start: 20100302
  9. CERTOLIZUMAB PEGOL [Suspect]
     Route: 058
     Dates: end: 20100216

REACTIONS (1)
  - DUODENAL ULCER [None]
